FAERS Safety Report 14587222 (Version 1)
Quarter: 2018Q1

REPORT INFORMATION
  Report Type: Spontaneous
  Country: ZA (occurrence: ZA)
  Receive Date: 20180301
  Receipt Date: 20180301
  Transmission Date: 20180509
  Serious: Yes (Hospitalization)
  Sender: FDA-Public Use
  Company Number: ZA-PFIZER INC-2018081872

PATIENT
  Age: 80 Year
  Sex: Male

DRUGS (6)
  1. MYLAN METFORMIN [Suspect]
     Active Substance: METFORMIN HYDROCHLORIDE
     Dosage: 500 MG, UNK
  2. SERDEP (SERTRALINE HYDROCHLORIDE) [Suspect]
     Active Substance: SERTRALINE HYDROCHLORIDE
     Dosage: 50 MG, UNK
  3. PHARMAPRESS /00574902/ [Suspect]
     Active Substance: ENALAPRIL MALEATE
     Dosage: 10 MG, UNK
  4. ASPAVOR [Suspect]
     Active Substance: ATORVASTATIN
     Dosage: 10 MG, UNK
  5. ACTRAPHANE [Suspect]
     Active Substance: INSULIN HUMAN
     Dosage: 100 IU, UNK
  6. ELTROXIN [Suspect]
     Active Substance: LEVOTHYROXINE
     Dosage: 50 UG, UNK

REACTIONS (1)
  - Hypoglycaemia [Unknown]
